FAERS Safety Report 5424707-2 (Version None)
Quarter: 2007Q3

REPORT INFORMATION
  Report Type: 
  Country: None (occurrence: None)
  Receive Date: 20070822
  Receipt Date: 20070822
  Transmission Date: 20080115
  Serious: Yes (Death)
  Sender: FDA-Public Use
  Company Number: None

PATIENT
  Age: 80 Year
  Sex: Male
  Weight: 72.6 kg

DRUGS (1)
  1. ALTEPLASE (TPA) [Suspect]
     Indication: ISCHAEMIC STROKE
     Dosage: 7.2MG ONCE IV
     Route: 042
     Dates: start: 20070605, end: 20070605

REACTIONS (3)
  - BRAIN HERNIATION [None]
  - CEREBRAL HAEMORRHAGE [None]
  - SUBARACHNOID HAEMORRHAGE [None]
